FAERS Safety Report 24256922 (Version 1)
Quarter: 2024Q3

REPORT INFORMATION
  Report Type: Spontaneous
  Country: CN (occurrence: CN)
  Receive Date: 20240828
  Receipt Date: 20240828
  Transmission Date: 20241016
  Serious: Yes (Other)
  Sender: AMGEN
  Company Number: CN-AMGEN-CHNSP2024168563

PATIENT
  Age: 66 Year
  Sex: Female
  Weight: 35 kg

DRUGS (6)
  1. XGEVA [Suspect]
     Active Substance: DENOSUMAB
     Indication: Nasopharyngeal cancer metastatic
     Dosage: 0.12 GRAM, DRIP (INTRAVENOUS GLUCOSE TOLERANCE TEST (IVGTT)
     Route: 042
     Dates: start: 20240802, end: 20240802
  2. GEMCITABINE HYDROCHLORIDE [Suspect]
     Active Substance: GEMCITABINE HYDROCHLORIDE
     Indication: Nasopharyngeal cancer metastatic
     Dosage: 1 GRAM/INTRAVENOUS GLUCOSE TOLERANCE TEST (IVGTT), DRIP
     Route: 042
     Dates: start: 20240726, end: 20240726
  3. GEMCITABINE HYDROCHLORIDE [Suspect]
     Active Substance: GEMCITABINE HYDROCHLORIDE
     Dosage: 1 GRAM/INTRAVENOUS GLUCOSE TOLERANCE TEST (IVGTT), DRIP
     Route: 042
     Dates: start: 20240801, end: 20240801
  4. TORIPALIMAB [Suspect]
     Active Substance: TORIPALIMAB
     Indication: Nasopharyngeal cancer metastatic
     Dosage: 0.16 GRAM/INTRAVENOUS GLUCOSE TOLERANCE TEST (IVGTT), DRIP
     Route: 042
     Dates: start: 20240725, end: 20240725
  5. VINORELBINE TARTRATE [Suspect]
     Active Substance: VINORELBINE TARTRATE
     Indication: Nasopharyngeal cancer metastatic
     Dosage: 0.25 GRAM/INTRAVENOUS GLUCOSE TOLERANCE TEST (IVGTT), DRIP
     Route: 042
     Dates: start: 20240726, end: 20240726
  6. VINORELBINE TARTRATE [Suspect]
     Active Substance: VINORELBINE TARTRATE
     Dosage: 0.25 GRAM/INTRAVENOUS GLUCOSE TOLERANCE TEST (IVGTT), DRIP
     Route: 042
     Dates: start: 20240801, end: 20240801

REACTIONS (2)
  - White blood cell count decreased [Recovering/Resolving]
  - Neutrophil count decreased [Recovering/Resolving]

NARRATIVE: CASE EVENT DATE: 20240808
